FAERS Safety Report 6849669-2 (Version None)
Quarter: 2010Q3

REPORT INFORMATION
  Report Type: 
  Country: None (occurrence: None)
  Receive Date: 20100716
  Receipt Date: 20071002
  Transmission Date: 20110219
  Serious: No
  Sender: FDA-Public Use
  Company Number: US-PFIZER INC-2007083334

PATIENT
  Sex: Female
  Weight: 63.6 kg

DRUGS (10)
  1. CHANTIX [Suspect]
     Indication: SMOKING CESSATION THERAPY
     Dates: start: 20070901
  2. PLAQUENIL [Concomitant]
  3. LASIX [Concomitant]
  4. REQUIP [Concomitant]
  5. CADUET [Concomitant]
  6. CICLOSPORIN [Concomitant]
  7. PROTONIX [Concomitant]
  8. POTASSIUM CHLORIDE [Concomitant]
  9. PLAVIX [Concomitant]
  10. TEGRETOL [Concomitant]

REACTIONS (1)
  - NAUSEA [None]
